FAERS Safety Report 6786560-4 (Version None)
Quarter: 2010Q2

REPORT INFORMATION
  Report Type: 
  Country: None (occurrence: None)
  Receive Date: 20100623
  Receipt Date: 20100618
  Transmission Date: 20101027
  Serious: Yes (Hospitalization)
  Sender: FDA-Public Use
  Company Number: GB-MERCK-1006GBR00051

PATIENT
  Age: 60 Year
  Sex: Male

DRUGS (5)
  1. ZOCOR [Suspect]
     Route: 048
     Dates: start: 20070101
  2. GLICLAZIDE [Concomitant]
     Route: 065
     Dates: start: 20070101
  3. RAMIPRIL [Concomitant]
     Route: 065
     Dates: start: 20070101
  4. ASPIRIN [Concomitant]
     Route: 065
     Dates: start: 20070101
  5. ATORVASTATIN [Suspect]
     Route: 065

REACTIONS (4)
  - BLOOD CREATINE PHOSPHOKINASE INCREASED [None]
  - MUSCULAR WEAKNESS [None]
  - MYALGIA [None]
  - MYASTHENIA GRAVIS [None]
